FAERS Safety Report 19617794 (Version 1)
Quarter: 2021Q3

REPORT INFORMATION
  Report Type: Spontaneous
  Country: NL (occurrence: NL)
  Receive Date: 20210727
  Receipt Date: 20210727
  Transmission Date: 20211014
  Serious: Yes (Hospitalization)
  Sender: FDA-Public Use
  Company Number: NL-SA-2021SA246883

PATIENT
  Sex: Male

DRUGS (1)
  1. APROVEL [Suspect]
     Active Substance: IRBESARTAN
     Route: 065

REACTIONS (9)
  - Memory impairment [Unknown]
  - Myalgia [Unknown]
  - Somnolence [Unknown]
  - Dizziness [Unknown]
  - Product contamination [Unknown]
  - Fall [Unknown]
  - Muscle strength abnormal [Unknown]
  - Arthralgia [Unknown]
  - Fatigue [Unknown]
